FAERS Safety Report 25298128 (Version 2)
Quarter: 2025Q2

REPORT INFORMATION
  Report Type: Spontaneous
  Country: US (occurrence: US)
  Receive Date: 20250512
  Receipt Date: 20250526
  Transmission Date: 20250717
  Serious: Yes (Hospitalization, Other)
  Sender: ALEMBIC
  Company Number: US-ALEMBIC PHARMACUETICALS LIMITED-2025SCAL000448

PATIENT

DRUGS (14)
  1. TREPROSTINIL [Suspect]
     Active Substance: TREPROSTINIL
     Indication: Pulmonary arterial hypertension
     Route: 065
  2. TREPROSTINIL [Suspect]
     Active Substance: TREPROSTINIL
     Route: 065
  3. ACETAZOLAMIDE [Suspect]
     Active Substance: ACETAZOLAMIDE
     Indication: Headache
     Route: 065
  4. FUROSEMIDE [Suspect]
     Active Substance: FUROSEMIDE
     Indication: Pulmonary arterial hypertension
     Route: 048
  5. FUROSEMIDE [Suspect]
     Active Substance: FUROSEMIDE
     Indication: Oedema peripheral
     Route: 042
  6. FUROSEMIDE [Suspect]
     Active Substance: FUROSEMIDE
     Indication: Pulmonary congestion
  7. TREPROSTINIL [Suspect]
     Active Substance: TREPROSTINIL
     Indication: Pulmonary arterial hypertension
     Route: 048
  8. TREPROSTINIL [Suspect]
     Active Substance: TREPROSTINIL
     Indication: Oedema peripheral
     Route: 048
  9. TREPROSTINIL [Suspect]
     Active Substance: TREPROSTINIL
     Indication: Pulmonary congestion
  10. SPIRONOLACTONE [Concomitant]
     Active Substance: SPIRONOLACTONE
     Indication: Pulmonary arterial hypertension
     Route: 048
  11. SILDENAFIL [Concomitant]
     Active Substance: SILDENAFIL
     Indication: Oedema peripheral
     Route: 048
  12. SILDENAFIL [Concomitant]
     Active Substance: SILDENAFIL
     Indication: Pulmonary congestion
  13. MACITENTAN [Concomitant]
     Active Substance: MACITENTAN
     Indication: Oedema peripheral
     Route: 048
  14. MACITENTAN [Concomitant]
     Active Substance: MACITENTAN
     Indication: Pulmonary congestion

REACTIONS (5)
  - Headache [Recovered/Resolved]
  - Nausea [Recovered/Resolved]
  - Vomiting [Recovered/Resolved]
  - Hypokalaemia [Recovered/Resolved]
  - Drug effective for unapproved indication [Unknown]
